FAERS Safety Report 9892195 (Version 1)
Quarter: 2014Q1

REPORT INFORMATION
  Report Type: Spontaneous
  Country: US (occurrence: US)
  Receive Date: 20140212
  Receipt Date: 20140212
  Transmission Date: 20141002
  Serious: Yes (Other)
  Sender: FDA-Public Use
  Company Number: US-B.I. PHARMACEUTICALS,INC./RIDGEFIELD-2014-BI-05156BP

PATIENT
  Sex: Female

DRUGS (22)
  1. CATAPRES [Suspect]
     Indication: PRODUCT USED FOR UNKNOWN INDICATION
  2. FENTANYL [Concomitant]
     Dosage: FORMULATION: FILM, EXTENDED RELEASE; STRENGTH: 75MCG/HR
     Route: 061
  3. LYRICA [Concomitant]
     Dosage: 100 MG
     Route: 048
  4. ZANAFLEX [Concomitant]
     Route: 048
  5. ALIGN [Concomitant]
     Dosage: 4 MG
     Route: 048
  6. AZELASTINE NASAL [Concomitant]
     Dosage: FROMULATION: SPRAY; STRENGTH: 137MCG/INH
     Route: 045
  7. CYANOCOBALAMIN [Concomitant]
     Dosage: STRENGTH: 500MCG/0.1ML
     Route: 045
  8. GLIMEPIRIDE [Concomitant]
     Dosage: 1 MG
     Route: 048
  9. FLUTICASONE [Concomitant]
     Dosage: 100 MCG
     Route: 055
  10. FENOFIBRATE [Concomitant]
     Dosage: 160 MG
     Route: 048
  11. DOCUSATE SODIUM [Concomitant]
     Dosage: 200 MG
     Route: 048
  12. VITAMIN D3 [Concomitant]
     Dosage: 800 U
     Route: 048
  13. VITAMIN E [Concomitant]
     Dosage: 400 U
     Route: 048
  14. BENADRYL [Concomitant]
     Route: 048
  15. TORSEMIDE [Concomitant]
     Route: 048
  16. LOVASTATIN [Concomitant]
     Dosage: 80 MG
     Route: 048
  17. PANTOPRAZOLE [Concomitant]
     Dosage: 40 MG
     Route: 048
  18. ALBUTEROL [Concomitant]
     Dosage: STRENGTH: 1.25MG/3ML (0.042%) SOLUTION, 1MG BY NEBULIZER
  19. PROAIR HFA [Concomitant]
     Dosage: STRENGTH: 90MCG/INH, 2PUFFS
     Route: 055
  20. EFFEXOR XR [Concomitant]
     Dosage: FORMULATION: CAPSULE, EXTENDED RELEASE
     Route: 048
  21. ATENOLOL [Concomitant]
     Dosage: 50 MG
     Route: 048
  22. SYNTHROID [Concomitant]
     Dosage: 224 MCG
     Route: 048

REACTIONS (16)
  - Breast cancer [Unknown]
  - Pulmonary embolism [Unknown]
  - Convulsion [Unknown]
  - Migraine [Unknown]
  - Sleep apnoea syndrome [Unknown]
  - Neuropathy peripheral [Unknown]
  - Abdominal pain [Unknown]
  - Depression [Unknown]
  - Gastrooesophageal reflux disease [Unknown]
  - Arthritis [Unknown]
  - Anxiety disorder [Unknown]
  - Chronic obstructive pulmonary disease [Unknown]
  - Diabetes mellitus [Unknown]
  - Hypertension [Unknown]
  - Asthma [Unknown]
  - Drug hypersensitivity [Unknown]
